FAERS Safety Report 25068129 (Version 2)
Quarter: 2025Q1

REPORT INFORMATION
  Report Type: Spontaneous
  Country: IT (occurrence: IT)
  Receive Date: 20250312
  Receipt Date: 20250320
  Transmission Date: 20250409
  Serious: Yes (Death, Other)
  Sender: DAIICHI
  Company Number: IT-DSJP-DS-2025-127602-IT

PATIENT
  Age: 8 Decade
  Sex: Male

DRUGS (1)
  1. TRASTUZUMAB DERUXTECAN [Suspect]
     Active Substance: TRASTUZUMAB DERUXTECAN
     Indication: Metastatic gastric cancer
     Route: 065

REACTIONS (2)
  - Pancytopenia [Fatal]
  - Metastases to bone marrow [Unknown]
